FAERS Safety Report 20506037 (Version 1)
Quarter: 2022Q1

REPORT INFORMATION
  Report Type: Spontaneous
  Country: US (occurrence: US)
  Receive Date: 20220223
  Receipt Date: 20220223
  Transmission Date: 20220423
  Serious: Yes (Other)
  Sender: FDA-Public Use
  Company Number: US-Hikma Pharmaceuticals USA Inc.-US-H14001-22-00445

PATIENT
  Sex: Female

DRUGS (4)
  1. FLECAINIDE [Suspect]
     Active Substance: FLECAINIDE
     Indication: Supraventricular extrasystoles
     Route: 048
  2. FLECAINIDE [Suspect]
     Active Substance: FLECAINIDE
     Indication: Ventricular extrasystoles
     Route: 048
  3. FLECAINIDE [Suspect]
     Active Substance: FLECAINIDE
     Route: 048
  4. FLECAINIDE [Suspect]
     Active Substance: FLECAINIDE
     Route: 048

REACTIONS (11)
  - Palpitations [Unknown]
  - Headache [Unknown]
  - Paraesthesia [Unknown]
  - Hyperhidrosis [Unknown]
  - Chills [Unknown]
  - Burning sensation [Unknown]
  - Tremor [Unknown]
  - Night sweats [Unknown]
  - Intentional product misuse [Unknown]
  - Intentional underdose [Unknown]
  - Treatment noncompliance [Unknown]
